FAERS Safety Report 6286547-4 (Version None)
Quarter: 2009Q3

REPORT INFORMATION
  Report Type: 
  Country: None (occurrence: None)
  Receive Date: 20090727
  Receipt Date: 20090727
  Transmission Date: 20100115
  Serious: Yes (Life-Threatening, Hospitalization)
  Sender: FDA-Public Use
  Company Number: None

PATIENT
  Age: 71 Year
  Sex: Male
  Weight: 104.3273 kg

DRUGS (1)
  1. ROPINIROLE [Suspect]
     Indication: RESTLESS LEGS SYNDROME
     Dosage: 3 MG 3 X DAILY MOUTH
     Route: 048
     Dates: start: 20080601, end: 20090601

REACTIONS (25)
  - ABDOMINAL DISTENSION [None]
  - ASTHENIA [None]
  - BLADDER CANCER [None]
  - BLOOD LACTATE DEHYDROGENASE INCREASED [None]
  - CELLULITIS [None]
  - DIPLOPIA [None]
  - DRY MOUTH [None]
  - FALL [None]
  - FATIGUE [None]
  - GRAVITATIONAL OEDEMA [None]
  - IMPAIRED DRIVING ABILITY [None]
  - INSOMNIA [None]
  - MUSCLE CONTRACTIONS INVOLUNTARY [None]
  - MUSCLE SPASMS [None]
  - MYALGIA [None]
  - NERVOUSNESS [None]
  - OEDEMA PERIPHERAL [None]
  - PAIN [None]
  - SOMNOLENCE [None]
  - TINNITUS [None]
  - TREMOR [None]
  - VISUAL IMPAIRMENT [None]
  - VITAMIN B12 DEFICIENCY [None]
  - WEIGHT INCREASED [None]
  - YAWNING [None]
